FAERS Safety Report 11095691 (Version 1)
Quarter: 2015Q2

REPORT INFORMATION
  Report Type: Report from Study
  Country: US (occurrence: US)
  Receive Date: 20150507
  Receipt Date: 20150507
  Transmission Date: 20150821
  Serious: Yes (Hospitalization)
  Sender: FDA-Public Use
  Company Number: PHHO2013US011812

PATIENT
  Age: 70 Year
  Sex: Male
  Weight: 76.2 kg

DRUGS (6)
  1. ASPIRIN. [Concomitant]
     Active Substance: ASPIRIN
     Indication: PAIN
     Route: 065
  2. NEXIUM [Concomitant]
     Active Substance: ESOMEPRAZOLE MAGNESIUM
     Indication: GASTROOESOPHAGEAL REFLUX DISEASE
     Dosage: 4 MG, QD
     Route: 048
  3. EXCEDRIN [Suspect]
     Active Substance: ACETAMINOPHEN\ASPIRIN\CAFFEINE
     Indication: PRODUCT USED FOR UNKNOWN INDICATION
     Route: 048
  4. TKI258 [Suspect]
     Active Substance: DOVITINIB LACTATE
     Indication: ADENOID CYSTIC CARCINOMA
     Dosage: 300 MG, (3 DAY ON /2 DAY OFF)
     Route: 048
     Dates: start: 20120510
  5. ZOCOR [Concomitant]
     Active Substance: SIMVASTATIN
     Indication: LOW DENSITY LIPOPROTEIN INCREASED
     Dosage: 5 MG/20 MG PO NIGHT
     Route: 048
  6. LYRICA [Concomitant]
     Active Substance: PREGABALIN
     Indication: NEURALGIA
     Dosage: 50 UG/HR, PATCH 72 HR
     Route: 065
     Dates: start: 20130507

REACTIONS (1)
  - Oesophageal ulcer [Not Recovered/Not Resolved]

NARRATIVE: CASE EVENT DATE: 20130908
